FAERS Safety Report 19800649 (Version 1)
Quarter: 2021Q3

REPORT INFORMATION
  Report Type: Spontaneous
  Country: US (occurrence: US)
  Receive Date: 20210907
  Receipt Date: 20210907
  Transmission Date: 20211014
  Serious: Yes (Other)
  Sender: FDA-Public Use
  Company Number: US-PFIZER INC-202101109575

PATIENT
  Age: 77 Year
  Sex: Female
  Weight: 71.67 kg

DRUGS (1)
  1. LIOTHYRONINE SODIUM. [Suspect]
     Active Substance: LIOTHYRONINE SODIUM
     Indication: HYPOTHYROIDISM
     Dosage: UNK

REACTIONS (3)
  - Reaction to excipient [Unknown]
  - Hypersensitivity [Unknown]
  - Anaphylactic reaction [Unknown]
